FAERS Safety Report 16973505 (Version 1)
Quarter: 2019Q4

REPORT INFORMATION
  Report Type: Spontaneous
  Country: FR (occurrence: FR)
  Receive Date: 20191030
  Receipt Date: 20191030
  Transmission Date: 20200122
  Serious: Yes (Life-Threatening)
  Sender: FDA-Public Use
  Company Number: FR-TEVA-2019-FR-1129256

PATIENT
  Age: 60 Year
  Sex: Male
  Weight: 64 kg

DRUGS (2)
  1. OXALIPLATINE TEVA 5 MG/ML, SOLUTION A DILUER POUR PERFUSION [Suspect]
     Active Substance: OXALIPLATIN
     Indication: RECTAL ADENOMA
     Dosage: 200 MG
     Route: 041
     Dates: start: 20190910, end: 20190910
  2. LEVOFOLINATE CALCIQUE [Concomitant]
     Active Substance: LEVOLEUCOVORIN CALCIUM
     Indication: ADJUVANT THERAPY
     Dates: start: 20190910, end: 20190910

REACTIONS (6)
  - Dyspnoea [Recovered/Resolved]
  - Hypersensitivity [Recovered/Resolved]
  - Feeling hot [Recovered/Resolved]
  - Paraesthesia [Recovered/Resolved]
  - Hypotension [Recovered/Resolved]
  - Abdominal pain [Recovered/Resolved]

NARRATIVE: CASE EVENT DATE: 20190910
